FAERS Safety Report 6998279-5 (Version None)
Quarter: 2010Q3

REPORT INFORMATION
  Report Type: 
  Country: None (occurrence: None)
  Receive Date: 20100920
  Receipt Date: 20090731
  Transmission Date: 20110219
  Serious: No
  Sender: FDA-Public Use
  Company Number: US-ASTRAZENECA-2009SE06462

PATIENT
  Age: 334 Month
  Sex: Female

DRUGS (1)
  1. SEROQUEL XR [Suspect]
     Route: 048
     Dates: start: 20090701

REACTIONS (3)
  - FEELING ABNORMAL [None]
  - INSOMNIA [None]
  - RESTLESS LEGS SYNDROME [None]
